FAERS Safety Report 9713676 (Version 1)
Quarter: 2013Q4

REPORT INFORMATION
  Report Type: Spontaneous
  Country: GB (occurrence: GB)
  Receive Date: 20131126
  Receipt Date: 20131126
  Transmission Date: 20140711
  Serious: Yes (Death)
  Sender: FDA-Public Use
  Company Number: GB-ELI_LILLY_AND_COMPANY-GB201311007394

PATIENT
  Age: 75 Year
  Sex: Male

DRUGS (2)
  1. PEMETREXED [Suspect]
     Indication: MESOTHELIOMA
  2. CARBOPLATIN [Concomitant]
     Indication: MESOTHELIOMA

REACTIONS (2)
  - Cardiac arrest [Fatal]
  - Off label use [Unknown]
